FAERS Safety Report 13775221 (Version 1)
Quarter: 2017Q3

REPORT INFORMATION
  Report Type: Spontaneous
  Country: US (occurrence: US)
  Receive Date: 20170720
  Receipt Date: 20170720
  Transmission Date: 20171127
  Serious: No
  Sender: FDA-Public Use
  Company Number: None

PATIENT
  Age: 63 Year
  Sex: Male

DRUGS (2)
  1. HUMIRA [Suspect]
     Active Substance: ADALIMUMAB
     Indication: COLITIS ULCERATIVE
     Dosage: HUMIRA 40MG/0.8ML EVERY OTHER WEEK SUBCUTANEOUSLY
     Route: 058
     Dates: start: 20161026, end: 20170612
  2. HUMIRA [Suspect]
     Active Substance: ADALIMUMAB
     Indication: CROHN^S DISEASE
     Dosage: HUMIRA 40MG/0.8ML EVERY OTHER WEEK SUBCUTANEOUSLY
     Route: 058
     Dates: start: 20161026, end: 20170612

REACTIONS (3)
  - Therapy cessation [None]
  - Drug hypersensitivity [None]
  - Arthralgia [None]

NARRATIVE: CASE EVENT DATE: 201706
